FAERS Safety Report 18148526 (Version 2)
Quarter: 2020Q3

REPORT INFORMATION
  Report Type: Spontaneous
  Country: US (occurrence: US)
  Receive Date: 20200813
  Receipt Date: 20200914
  Transmission Date: 20201103
  Serious: Yes (Hospitalization, Other)
  Sender: FDA-Public Use
  Company Number: NVSC2020US222337

PATIENT
  Sex: Female

DRUGS (5)
  1. PEG?ADENOSINE DEAMINASE [Suspect]
     Active Substance: PEGADEMASE BOVINE
     Indication: FOETAL EXPOSURE DURING PREGNANCY
     Dosage: MATERNAL DOSE: 1500 IU, QW
     Route: 064
  2. METHYLDOPA. [Suspect]
     Active Substance: METHYLDOPA
     Indication: FOETAL EXPOSURE DURING PREGNANCY
     Dosage: UNK (MATERNAL DOSE: UNK)
     Route: 064
  3. MAGNESIUM [Suspect]
     Active Substance: MAGNESIUM
     Indication: FOETAL EXPOSURE DURING PREGNANCY
     Dosage: UNK (MATERNAL DOSE)
     Route: 064
  4. LABETALOL [Suspect]
     Active Substance: LABETALOL\LABETALOL HYDROCHLORIDE
     Indication: FOETAL EXPOSURE DURING PREGNANCY
     Dosage: UNK (MATERNAL DOSE: UNK)
     Route: 064
  5. SULFAMETHOXAZOLE [Suspect]
     Active Substance: SULFAMETHOXAZOLE
     Indication: FOETAL EXPOSURE DURING PREGNANCY
     Dosage: UNK UNK, TIW (MATERNAL DOSE)
     Route: 064

REACTIONS (4)
  - Foetal exposure during pregnancy [Unknown]
  - Jaundice neonatal [Recovered/Resolved]
  - Temperature regulation disorder [Recovered/Resolved]
  - Premature baby [Unknown]
